FAERS Safety Report 24076248 (Version 1)
Quarter: 2024Q3

REPORT INFORMATION
  Report Type: Spontaneous
  Country: US (occurrence: US)
  Receive Date: 20240711
  Receipt Date: 20240711
  Transmission Date: 20241016
  Serious: No
  Sender: BRISTOL MYERS SQUIBB
  Company Number: US-BRISTOL-MYERS SQUIBB COMPANY-2024-109314

PATIENT
  Age: 76 Year
  Sex: Male
  Weight: 93.44 kg

DRUGS (2)
  1. ELIQUIS [Suspect]
     Active Substance: APIXABAN
     Indication: Performance enhancing product use
     Route: 048
  2. AXITINIB [Suspect]
     Active Substance: AXITINIB
     Indication: Product used for unknown indication
     Route: 048

REACTIONS (3)
  - Glossodynia [Unknown]
  - Palmar-plantar erythrodysaesthesia syndrome [Unknown]
  - Off label use [Unknown]
